FAERS Safety Report 5408749-9 (Version None)
Quarter: 2007Q3

REPORT INFORMATION
  Report Type: 
  Country: None (occurrence: None)
  Receive Date: 20070808
  Receipt Date: 20070801
  Transmission Date: 20080115
  Serious: Yes (Other)
  Sender: FDA-Public Use
  Company Number: B0482177A

PATIENT
  Age: 68 Year
  Sex: Female

DRUGS (3)
  1. AUGMENTIN '125' [Suspect]
     Route: 065
     Dates: start: 20070720, end: 20070720
  2. AMOXICILLIN [Concomitant]
     Route: 065
  3. PENICILLIN [Concomitant]
     Route: 065

REACTIONS (2)
  - ANAPHYLACTIC REACTION [None]
  - PHARMACEUTICAL PRODUCT COMPLAINT [None]
